FAERS Safety Report 4661686-X (Version None)
Quarter: 2005Q2

REPORT INFORMATION
  Report Type: 
  Country: None (occurrence: None)
  Receive Date: 20050511
  Receipt Date: 20050511
  Transmission Date: 20051028
  Serious: Yes (Hospitalization)
  Sender: FDA-Public Use
  Company Number: None

PATIENT
  Age: 56 Year
  Sex: Male

DRUGS (5)
  1. WARFARIN [Suspect]
     Indication: THROMBOSIS PROPHYLAXIS
     Dosage: 4 MG QD
     Dates: start: 20041101
  2. QUETIAPINE [Suspect]
     Indication: NIGHTMARE
     Dosage: 100 MG QHS
     Dates: start: 20020801
  3. METOPROLOL [Suspect]
     Indication: HYPERTENSION
     Dosage: 25 MG BID
     Dates: start: 19971001
  4. NITROGLYCERIN [Concomitant]
  5. OMEPRAZOLE [Concomitant]

REACTIONS (3)
  - HYPOTENSION [None]
  - INTERNATIONAL NORMALISED RATIO INCREASED [None]
  - SYNCOPE [None]
